FAERS Safety Report 12536522 (Version 1)
Quarter: 2016Q3

REPORT INFORMATION
  Report Type: Spontaneous
  Country: US (occurrence: US)
  Receive Date: 20160707
  Receipt Date: 20160707
  Transmission Date: 20161109
  Serious: No
  Sender: FDA-Public Use
  Company Number: US-PFIZER INC-2016332052

PATIENT
  Age: 63 Year
  Sex: Female
  Weight: 56 kg

DRUGS (6)
  1. PREMARIN [Suspect]
     Active Substance: ESTROGENS, CONJUGATED
     Indication: SKIN DISORDER
     Dosage: BLUEBERRY SIZE OF THE CREAM THREE TIMES A WEEK
  2. PREMARIN [Suspect]
     Active Substance: ESTROGENS, CONJUGATED
     Dosage: 2X/WEEK; 1/4 OF AN INCH MAYBE A TINY BIT MORE TWICE A WEEK
     Dates: start: 20160704
  3. PREMARIN [Suspect]
     Active Substance: ESTROGENS, CONJUGATED
     Indication: ROUTINE HEALTH MAINTENANCE
     Dosage: 2X/WEEK; 1/4 OF AN INCH MAYBE A TINY BIT MORE TWICE A WEEK
     Dates: start: 2016
  4. HYDROCHLOROTHIAZIDE. [Concomitant]
     Active Substance: HYDROCHLOROTHIAZIDE
     Indication: BLOOD PRESSURE ABNORMAL
     Dosage: 0.25 MG, 1X/DAY
  5. PREMARIN [Suspect]
     Active Substance: ESTROGENS, CONJUGATED
     Indication: MENOPAUSAL SYMPTOMS
     Dosage: 2X/WEEK; 1 INCH AND A HALF OF THE TUBE TWICE A WEEK
     Dates: start: 2008
  6. PREMARIN [Suspect]
     Active Substance: ESTROGENS, CONJUGATED
     Indication: VULVOVAGINAL DRYNESS
     Dosage: 2X/WEEK; 3/4 OF AN INCH TWICE A WEEK

REACTIONS (5)
  - Chills [Not Recovered/Not Resolved]
  - Migraine [Not Recovered/Not Resolved]
  - Hot flush [Not Recovered/Not Resolved]
  - Muscle spasms [Not Recovered/Not Resolved]
  - Migraine with aura [Not Recovered/Not Resolved]

NARRATIVE: CASE EVENT DATE: 201604
